FAERS Safety Report 6706306-5 (Version None)
Quarter: 2010Q2

REPORT INFORMATION
  Report Type: 
  Country: None (occurrence: None)
  Receive Date: 20100430
  Receipt Date: 20100430
  Transmission Date: 20101027
  Serious: Yes (Life-Threatening, Hospitalization, Other)
  Sender: FDA-Public Use
  Company Number: None

PATIENT
  Sex: Female
  Weight: 81.1 kg

DRUGS (16)
  1. CLOFARABINE 1MG/ML GENZYME [Suspect]
     Indication: ACUTE MYELOID LEUKAEMIA
     Dosage: 73MG Q24HOUR IV
     Route: 042
     Dates: start: 20100311, end: 20100315
  2. CYTARABINE [Concomitant]
  3. VITAMIN B6 [Concomitant]
  4. FLUCONAZOLE [Concomitant]
  5. BACTRIM [Concomitant]
  6. NORCO [Concomitant]
  7. PREVACID [Concomitant]
  8. ATIVAN [Concomitant]
  9. PHENERGAN [Concomitant]
  10. BENADRYL [Concomitant]
  11. DECADRON [Concomitant]
  12. ZOFRAN [Concomitant]
  13. METHADONE HCL [Concomitant]
  14. KYTRIL [Concomitant]
  15. VANCOMYCIN [Concomitant]
  16. DILAUDID [Concomitant]

REACTIONS (4)
  - BLISTER [None]
  - GENERAL PHYSICAL HEALTH DETERIORATION [None]
  - THROMBOSIS [None]
  - TOXIC EPIDERMAL NECROLYSIS [None]
